FAERS Safety Report 7030519-9 (Version None)
Quarter: 2010Q4

REPORT INFORMATION
  Report Type: 
  Country: None (occurrence: None)
  Receive Date: 20101006
  Receipt Date: 20100929
  Transmission Date: 20110411
  Serious: Yes (Death)
  Sender: FDA-Public Use
  Company Number: RU-ROCHE-662802

PATIENT
  Sex: Male
  Weight: 75 kg

DRUGS (5)
  1. BEVACIZUMAB [Suspect]
     Indication: NON-SMALL CELL LUNG CANCER
     Dosage: FORM: VIALS, SOLUTION, LAST DOSE PRIOR TO SAE: 24 SEPTEMBER 2009
     Route: 042
     Dates: start: 20090716, end: 20091007
  2. PACLITAXEL [Suspect]
     Indication: NON-SMALL CELL LUNG CANCER
     Dosage: FORM: VIALS, SOLUTION,LAST DOSE PRIOR TO SAE: 24 SEPTEMBER 2009
     Route: 042
     Dates: start: 20090716, end: 20091007
  3. CARBOPLATIN [Suspect]
     Indication: NON-SMALL CELL LUNG CANCER
     Dosage: FORM: VIALS,SOLUTION, LAST DOSE PRIOR TO SAE: 24 SEPTEMBER 2009
     Route: 042
     Dates: start: 20090716, end: 20091007
  4. ATORVASTATIN [Concomitant]
     Dates: start: 20070101
  5. NOLIPREL [Concomitant]
     Dates: start: 20070101

REACTIONS (1)
  - DEATH [None]
